FAERS Safety Report 6321714-2 (Version None)
Quarter: 2009Q3

REPORT INFORMATION
  Report Type: 
  Country: None (occurrence: None)
  Receive Date: 20090819
  Receipt Date: 20090807
  Transmission Date: 20100115
  Serious: Yes (Other)
  Sender: FDA-Public Use
  Company Number: DE-1170556

PATIENT
  Age: 86 Year
  Sex: Male

DRUGS (1)
  1. FLUORESCEIN SODIUM  (FLUORESCEIN SODIUM) 10 % INJECTION LOT # 160841F [Suspect]
     Dosage: 5 ML
     Route: 040
     Dates: start: 20090722

REACTIONS (6)
  - BRADYCARDIA [None]
  - FACIAL PARESIS [None]
  - HYPOTENSION [None]
  - LOSS OF CONSCIOUSNESS [None]
  - MYDRIASIS [None]
  - URINARY INCONTINENCE [None]
